FAERS Safety Report 11168248 (Version 3)
Quarter: 2019Q4

REPORT INFORMATION
  Report Type: Report from Study
  Country: US (occurrence: US)
  Receive Date: 20150605
  Receipt Date: 20191121
  Transmission Date: 20200122
  Serious: Yes (Other)
  Sender: FDA-Public Use
  Company Number: US-SA-2014SA134969

PATIENT
  Age: 50 Year
  Sex: Female

DRUGS (8)
  1. TERIFLUNOMIDE. [Suspect]
     Active Substance: TERIFLUNOMIDE
     Dosage: 14 MG,QD
     Route: 048
     Dates: end: 201705
  2. TERIFLUNOMIDE. [Suspect]
     Active Substance: TERIFLUNOMIDE
     Indication: MULTIPLE SCLEROSIS
     Dosage: 14 MG,QD
     Route: 048
     Dates: start: 201308
  3. TERIFLUNOMIDE. [Suspect]
     Active Substance: TERIFLUNOMIDE
     Dosage: 14 MG,QD
     Route: 048
  4. TERIFLUNOMIDE. [Suspect]
     Active Substance: TERIFLUNOMIDE
     Dosage: 14 MG,QD
     Route: 048
     Dates: start: 20140913
  5. HYDROCHLOROTHIAZIDE. [Concomitant]
     Active Substance: HYDROCHLOROTHIAZIDE
     Dosage: UNK
  6. CYMBALTA [Concomitant]
     Active Substance: DULOXETINE HYDROCHLORIDE
     Dosage: UNK
  7. SYNTHROID [Concomitant]
     Active Substance: LEVOTHYROXINE SODIUM
     Dosage: UNK
  8. TIZANIDINE. [Concomitant]
     Active Substance: TIZANIDINE
     Dosage: UNK

REACTIONS (32)
  - Multiple sclerosis relapse [Unknown]
  - Abnormal dreams [Recovering/Resolving]
  - Palpitations [Not Recovered/Not Resolved]
  - Condition aggravated [Recovering/Resolving]
  - Decreased appetite [Unknown]
  - Unevaluable event [Recovering/Resolving]
  - Headache [Not Recovered/Not Resolved]
  - Upper respiratory tract infection [Unknown]
  - Neoplasm [Recovered/Resolved]
  - Insomnia [Not Recovered/Not Resolved]
  - Band sensation [Not Recovered/Not Resolved]
  - Glossodynia [Recovered/Resolved]
  - Typical aura without headache [Recovered/Resolved]
  - Feeling abnormal [Recovering/Resolving]
  - Eye disorder [Not Recovered/Not Resolved]
  - Heart rate abnormal [Unknown]
  - Nasopharyngitis [Unknown]
  - Back pain [Unknown]
  - Paraesthesia [Unknown]
  - Blood pressure increased [Recovering/Resolving]
  - Product dose omission [Unknown]
  - Chest discomfort [Not Recovered/Not Resolved]
  - Hypoaesthesia oral [Recovered/Resolved]
  - Fatigue [Unknown]
  - Dyspnoea [Unknown]
  - Pruritus [Not Recovered/Not Resolved]
  - Pyrexia [Unknown]
  - Malaise [Not Recovered/Not Resolved]
  - Eye disorder [Not Recovered/Not Resolved]
  - Paraesthesia [Unknown]
  - Hypoaesthesia [Unknown]
  - Vomiting [Recovered/Resolved]

NARRATIVE: CASE EVENT DATE: 201308
